FAERS Safety Report 19355349 (Version 4)
Quarter: 2022Q2

REPORT INFORMATION
  Report Type: Report from Study
  Country: CA (occurrence: CA)
  Receive Date: 20210531
  Receipt Date: 20220406
  Transmission Date: 20220720
  Serious: Yes (Hospitalization, Other)
  Sender: FDA-Public Use
  Company Number: CA-TAKEDA-2020TUS054045

PATIENT
  Age: 61 Year
  Sex: Female

DRUGS (5)
  1. HUMAN IMMUNOGLOBULIN G [Suspect]
     Active Substance: HUMAN IMMUNOGLOBULIN G
     Indication: Secondary immunodeficiency
     Dosage: 8 GRAM, 1/WEEK
     Route: 058
     Dates: start: 20200601
  2. HUMAN IMMUNOGLOBULIN G [Suspect]
     Active Substance: HUMAN IMMUNOGLOBULIN G
     Dosage: 10 GRAM, 1/WEEK
     Route: 058
     Dates: start: 20200601
  3. PFIZER-BIONTECH COVID-19 VACCINE [Suspect]
     Active Substance: TOZINAMERAN
     Indication: COVID-19 immunisation
     Dosage: UNK
     Route: 065
     Dates: start: 20210507
  4. BERINERT [Concomitant]
     Active Substance: HUMAN C1-ESTERASE INHIBITOR
     Dosage: 1500 MILLILITER
     Route: 042
  5. CUTAQUIG [Concomitant]
     Active Substance: HUMAN IMMUNOGLOBULIN G
     Dosage: 2 MILLIGRAM, 4/WEEK
     Route: 058

REACTIONS (7)
  - Angioedema [Recovered/Resolved]
  - Anaphylactic reaction [Recovered/Resolved]
  - Hospitalisation [Unknown]
  - Allergy to vaccine [Recovered/Resolved]
  - Bronchitis [Recovered/Resolved]
  - COVID-19 immunisation [Unknown]
  - Medication error [Unknown]

NARRATIVE: CASE EVENT DATE: 20210409
